FAERS Safety Report 20363340 (Version 1)
Quarter: 2022Q1

REPORT INFORMATION
  Report Type: Spontaneous
  Country: None (occurrence: US)
  Receive Date: 20220121
  Receipt Date: 20220121
  Transmission Date: 20220423
  Serious: No
  Sender: FDA-Public Use
  Company Number: US-Matrixx Initiatives, Inc.-2124199

PATIENT
  Age: 34 Year
  Sex: Female
  Weight: 78.182 kg

DRUGS (3)
  1. ZICAM INTENSE SINUS RELIEF [Suspect]
     Active Substance: OXYMETAZOLINE HYDROCHLORIDE
     Indication: Nasal congestion
     Route: 045
  2. VITAMINS [Concomitant]
     Active Substance: VITAMINS
  3. ZYRTEC [Concomitant]
     Active Substance: CETIRIZINE HYDROCHLORIDE

REACTIONS (13)
  - Drug dependence [None]
  - Rebound nasal congestion [None]
  - Nasal discomfort [None]
  - Rhinalgia [None]
  - Nasal dryness [None]
  - Epistaxis [None]
  - Nasal congestion [None]
  - Maternal exposure timing unspecified [None]
  - Maternal drugs affecting foetus [None]
  - Dyspnoea [None]
  - Wrong technique in product usage process [None]
  - COVID-19 [None]
  - Chest pain [None]
